FAERS Safety Report 9344454 (Version 1)
Quarter: 2013Q2

REPORT INFORMATION
  Report Type: Spontaneous
  Country: CA (occurrence: CA)
  Receive Date: 20130612
  Receipt Date: 20130612
  Transmission Date: 20140414
  Serious: Yes (Other)
  Sender: FDA-Public Use
  Company Number: CA-TEVA-411791USA

PATIENT
  Age: 86 Year
  Sex: Male
  Weight: 86.26 kg

DRUGS (2)
  1. CLOPIDOGREL [Suspect]
     Dosage: 75 MILLIGRAM DAILY;
     Route: 065
  2. NORVASC [Concomitant]

REACTIONS (3)
  - Asthenia [Recovered/Resolved]
  - Dizziness [Recovered/Resolved]
  - Transient ischaemic attack [Recovered/Resolved]
